FAERS Safety Report 24839439 (Version 3)
Quarter: 2025Q1

REPORT INFORMATION
  Report Type: Report from Study
  Country: US (occurrence: US)
  Receive Date: 20250114
  Receipt Date: 20250131
  Transmission Date: 20250408
  Serious: Yes (Hospitalization)
  Sender: ABBVIE
  Company Number: US-ABBVIE-6083032

PATIENT
  Age: 64 Year
  Sex: Female
  Weight: 62 kg

DRUGS (5)
  1. RINVOQ [Suspect]
     Active Substance: UPADACITINIB
     Indication: Rheumatoid arthritis
     Dosage: FORM STRENGTH: 15 MILLIGRAM?LAST ADMIN DATE: 2024
     Route: 048
     Dates: start: 202409
  2. RINVOQ [Suspect]
     Active Substance: UPADACITINIB
     Indication: Rheumatoid arthritis
     Route: 048
     Dates: start: 202501
  3. RINVOQ [Suspect]
     Active Substance: UPADACITINIB
     Indication: Rheumatoid arthritis
     Route: 048
     Dates: start: 20241004
  4. MESTINON [Concomitant]
     Active Substance: PYRIDOSTIGMINE BROMIDE
     Indication: Myasthenia gravis
  5. FERROUS SULFATE [Concomitant]
     Active Substance: FERROUS SULFATE
     Indication: Anaemia

REACTIONS (14)
  - Fall [Recovered/Resolved]
  - Fall [Recovering/Resolving]
  - Platelet count abnormal [Not Recovered/Not Resolved]
  - Head injury [Unknown]
  - Stress [Unknown]
  - Loss of consciousness [Not Recovered/Not Resolved]
  - Pneumonia bacterial [Recovering/Resolving]
  - Blood potassium decreased [Recovered/Resolved]
  - Dizziness [Unknown]
  - Rhinovirus infection [Unknown]
  - Sepsis [Recovering/Resolving]
  - Blood sodium decreased [Recovered/Resolved]
  - Cough [Not Recovered/Not Resolved]
  - Balance disorder [Unknown]

NARRATIVE: CASE EVENT DATE: 20250101
